FAERS Safety Report 8509634-6 (Version None)
Quarter: 2012Q3

REPORT INFORMATION
  Report Type: 
  Country: None (occurrence: None)
  Receive Date: 20120713
  Receipt Date: 20120709
  Transmission Date: 20120928
  Serious: Yes (Hospitalization)
  Sender: FDA-Public Use
  Company Number: PHHY2012TW048581

PATIENT
  Sex: Male

DRUGS (1)
  1. SEBIVO [Suspect]
     Indication: VIRAL HEPATITIS CARRIER
     Dosage: 1 DF, QD
     Route: 048
     Dates: start: 20090101, end: 20120301

REACTIONS (6)
  - HYPOAESTHESIA [None]
  - DYSGEUSIA [None]
  - MYOSITIS [None]
  - MUSCULAR WEAKNESS [None]
  - WEIGHT DECREASED [None]
  - RENAL IMPAIRMENT [None]
